FAERS Safety Report 7954656-7 (Version None)
Quarter: 2011Q4

REPORT INFORMATION
  Report Type: 
  Country: None (occurrence: None)
  Receive Date: 20111202
  Receipt Date: 20111129
  Transmission Date: 20120403
  Serious: Yes (Death)
  Sender: FDA-Public Use
  Company Number: PHHY2011FR104185

PATIENT
  Sex: Female
  Weight: 39 kg

DRUGS (4)
  1. AMIODARONE HCL [Concomitant]
     Dosage: UNK UKN, UNK
     Dates: start: 20080101
  2. PERINDOPRIL ERBUMINE [Concomitant]
     Dosage: UNK UKN, UNK
  3. ZOLEDRONOC ACID [Suspect]
     Indication: OSTEOPOROSIS
     Dosage: 5 MG
     Route: 042
     Dates: start: 20110119
  4. PREVISCAN [Concomitant]
     Dosage: UNK UKN, UNK
     Dates: start: 20080101

REACTIONS (1)
  - LUNG DISORDER [None]
